FAERS Safety Report 4960718-9 (Version None)
Quarter: 2006Q2

REPORT INFORMATION
  Report Type: 
  Country: None (occurrence: None)
  Receive Date: 20060403
  Receipt Date: 20050929
  Transmission Date: 20061013
  Serious: Yes (Other)
  Sender: FDA-Public Use
  Company Number: JP-SANOFI-SYNTHELABO-A01200506755

PATIENT
  Sex: Female
  Weight: 44 kg

DRUGS (10)
  1. OXALIPLATIN [Suspect]
     Indication: LARGE INTESTINE CARCINOMA
     Dosage: 85MG/BODY=65.4MG/M2
     Route: 042
     Dates: start: 20050927, end: 20050927
  2. FLUOROURACIL [Suspect]
     Indication: LARGE INTESTINE CARCINOMA
     Dosage: 400MG/BODY=307.7MG/M2IN BOLUS THEN 2500MG/BODY =1923.1MG/M2 IN CONTINUOUS INFUSION.
     Dates: start: 20050927, end: 20050928
  3. CALCIUM LEVOFOLINATE [Concomitant]
     Dosage: 200MG/BODY=153.8MG/M2
     Dates: start: 20050927, end: 20050927
  4. DECADRON SRC [Concomitant]
     Dates: start: 20050913, end: 20050927
  5. KYTRIL [Concomitant]
     Dates: start: 20050913, end: 20050927
  6. PRIMPERAN TAB [Concomitant]
     Dates: start: 20050914, end: 20051010
  7. ZOFRAN [Concomitant]
     Route: 048
     Dates: start: 20050928, end: 20050928
  8. MEYLON [Concomitant]
     Dates: start: 20050929, end: 20050929
  9. AMINOLEBAN [Concomitant]
     Dates: start: 20050930, end: 20051003
  10. UNASYN [Concomitant]
     Dates: start: 20051001, end: 20051010

REACTIONS (5)
  - DEPRESSED LEVEL OF CONSCIOUSNESS [None]
  - HEPATIC ENCEPHALOPATHY [None]
  - LEUKOENCEPHALOPATHY [None]
  - LEUKOPENIA [None]
  - PYREXIA [None]
